FAERS Safety Report 20080746 (Version 5)
Quarter: 2022Q2

REPORT INFORMATION
  Report Type: Report from Study
  Country: DE (occurrence: None)
  Receive Date: 20211117
  Receipt Date: 20220427
  Transmission Date: 20220721
  Serious: Yes (Life-Threatening, Hospitalization)
  Sender: FDA-Public Use
  Company Number: DE-ROCHE-2950151

PATIENT
  Age: 39 Year
  Sex: Female
  Weight: 49 kg

DRUGS (21)
  1. ATEZOLIZUMAB [Suspect]
     Active Substance: ATEZOLIZUMAB
     Indication: Triple negative breast cancer
     Dosage: DATE OF LAST DOSE PRIOR TO SAE: 06/OCT/2021, 27/OCT/2021
     Route: 041
     Dates: start: 20210804
  2. PACLITAXEL [Suspect]
     Active Substance: PACLITAXEL
     Indication: Triple negative breast cancer
     Dosage: DATE OF LAST DOSE PRIOR TO SAE: 13/OCT/2021
     Route: 042
     Dates: start: 20210804
  3. CARBOPLATIN [Suspect]
     Active Substance: CARBOPLATIN
     Indication: Triple negative breast cancer
     Dosage: DATE OF LAST DOSE PRIOR TO SAE: 13 OCT 2021
     Route: 042
     Dates: start: 20210804
  4. COVID-19 VACCINE NOS [Suspect]
     Active Substance: COVID-19 VACCINE NOS
     Indication: Immunisation
     Route: 065
     Dates: start: 20210826, end: 20210826
  5. COVID-19 VACCINE NOS [Suspect]
     Active Substance: COVID-19 VACCINE NOS
     Route: 065
     Dates: start: 20211019, end: 20211019
  6. CYCLOPHOSPHAMIDE [Suspect]
     Active Substance: CYCLOPHOSPHAMIDE
     Indication: Triple negative breast cancer
     Dosage: DATE OF LAST DOSE PRIOR TO SAE: 27/OCT/2021
     Route: 042
     Dates: start: 20211027
  7. EPIRUBICIN [Suspect]
     Active Substance: EPIRUBICIN
     Indication: Triple negative breast cancer
     Dosage: DATE OF LAST DOSE PRIOR TO SAE: 27/OCT/2021
     Route: 042
     Dates: start: 20211027
  8. IBUPROFEN [Concomitant]
     Active Substance: IBUPROFEN
     Dates: start: 20210810
  9. PANTOPRAZOLE [Concomitant]
     Active Substance: PANTOPRAZOLE
     Dates: start: 20210811
  10. PANTOPRAZOLE [Concomitant]
     Active Substance: PANTOPRAZOLE
     Dates: start: 20210818, end: 20211027
  11. MCP [Concomitant]
     Active Substance: METOCLOPRAMIDE HYDROCHLORIDE
     Dates: start: 20210818
  12. CYANOCOBALAMIN [Concomitant]
     Active Substance: CYANOCOBALAMIN
     Dates: start: 20211018, end: 20211019
  13. ONDANSETRON [Concomitant]
     Active Substance: ONDANSETRON
     Dates: start: 20210929
  14. RIVOTRIL [Concomitant]
     Active Substance: CLONAZEPAM
     Dates: start: 20210901
  15. ACETAMINOPHEN [Concomitant]
     Active Substance: ACETAMINOPHEN
     Dates: start: 20211020, end: 20211020
  16. ZOFRAN [Concomitant]
     Active Substance: ONDANSETRON HYDROCHLORIDE
     Dates: start: 20210804, end: 20210929
  17. DEXAMETHASONE [Concomitant]
     Active Substance: DEXAMETHASONE
     Dates: start: 20210804, end: 20211013
  18. DEXAMETHASONE [Concomitant]
     Active Substance: DEXAMETHASONE
     Dates: start: 20211027, end: 20211124
  19. DIMETHINDENE [Concomitant]
     Active Substance: DIMETHINDENE
     Dates: start: 20210804, end: 20211013
  20. ALOXI [Concomitant]
     Active Substance: PALONOSETRON HYDROCHLORIDE
     Dates: start: 20211006, end: 20211027
  21. APREPITANT [Concomitant]
     Active Substance: APREPITANT
     Dosage: 125/80 MG
     Dates: start: 20211027, end: 20211124

REACTIONS (3)
  - General physical health deterioration [Recovered/Resolved]
  - Febrile neutropenia [Recovered/Resolved]
  - Cholecystitis [Recovered/Resolved]

NARRATIVE: CASE EVENT DATE: 20211020
